FAERS Safety Report 7553698-3 (Version None)
Quarter: 2011Q2

REPORT INFORMATION
  Report Type: 
  Country: None (occurrence: None)
  Receive Date: 20110609
  Receipt Date: 20110527
  Transmission Date: 20111010
  Serious: Yes (Other)
  Sender: FDA-Public Use
  Company Number: 1000021443

PATIENT
  Age: 14 Year
  Sex: Female

DRUGS (1)
  1. LEXAPRO [Suspect]
     Dates: start: 20020305

REACTIONS (3)
  - PETECHIAE [None]
  - BREAST PAIN [None]
  - CONTUSION [None]
